FAERS Safety Report 20172652 (Version 1)
Quarter: 2021Q4

REPORT INFORMATION
  Report Type: Spontaneous
  Country: FR (occurrence: FR)
  Receive Date: 20211211
  Receipt Date: 20211211
  Transmission Date: 20220303
  Serious: Yes (Other)
  Sender: FDA-Public Use
  Company Number: FR-002147023-NVSC2021FR279257

PATIENT
  Age: 60 Year
  Sex: Female

DRUGS (4)
  1. XOLAIR [Suspect]
     Active Substance: OMALIZUMAB
     Indication: Chronic spontaneous urticaria
     Route: 058
  2. XOLAIR [Suspect]
     Active Substance: OMALIZUMAB
     Route: 058
  3. XOLAIR [Suspect]
     Active Substance: OMALIZUMAB
     Route: 058
  4. CETIRIZINE [Concomitant]
     Active Substance: CETIRIZINE HYDROCHLORIDE
     Indication: Product used for unknown indication
     Dosage: 10 MG, BID (MORNING, EVENING)
     Route: 065

REACTIONS (4)
  - Angioedema [Recovering/Resolving]
  - Insomnia [Recovering/Resolving]
  - Pruritus [Recovering/Resolving]
  - Off label use [Unknown]
